FAERS Safety Report 23259791 (Version 1)
Quarter: 2023Q4

REPORT INFORMATION
  Report Type: Spontaneous
  Country: JP (occurrence: JP)
  Receive Date: 20231204
  Receipt Date: 20231204
  Transmission Date: 20240109
  Serious: Yes (Hospitalization)
  Sender: FDA-Public Use
  Company Number: JP-PFIZER INC-PV202300164071

PATIENT
  Age: 40 Year
  Sex: Male
  Weight: 53 kg

DRUGS (7)
  1. PAXLOVID [Interacting]
     Active Substance: NIRMATRELVIR\RITONAVIR
     Indication: COVID-19 treatment
     Dosage: [NIRMATRELVIR 300 MG]/[RITONAVIR 100 MG]; 2X/DAY
     Route: 048
     Dates: start: 20230903, end: 20230906
  2. PROGRAF [Interacting]
     Active Substance: TACROLIMUS
     Indication: Lupus nephritis
     Dosage: 2 MG, 1X/DAY
     Route: 048
     Dates: start: 2010, end: 20230906
  3. CALONAL [Concomitant]
     Active Substance: ACETAMINOPHEN
     Indication: COVID-19
     Dosage: 500 MG, AS NEEDED
     Route: 048
     Dates: start: 20230903, end: 20230911
  4. CALONAL [Concomitant]
     Active Substance: ACETAMINOPHEN
     Indication: Headache
  5. PREDNISOLONE [Concomitant]
     Active Substance: PREDNISOLONE
     Indication: Systemic lupus erythematosus
     Dosage: 4 MG
  6. MYCOPHENOLATE MOFETIL [Concomitant]
     Active Substance: MYCOPHENOLATE MOFETIL
     Indication: Systemic lupus erythematosus
     Dosage: UNK
  7. BELATACEPT [Concomitant]
     Active Substance: BELATACEPT
     Indication: Systemic lupus erythematosus
     Dosage: UNK

REACTIONS (12)
  - Drug interaction [Recovered/Resolved]
  - Immunosuppressant drug level increased [Recovered/Resolved]
  - Vomiting [Recovered/Resolved]
  - Diarrhoea [Recovered/Resolved]
  - Hypophagia [Unknown]
  - Blood urea increased [Recovered/Resolved]
  - Platelet count decreased [Recovered/Resolved]
  - Prothrombin time prolonged [Recovered/Resolved]
  - Blood creatinine increased [Recovered/Resolved]
  - Headache [Recovered/Resolved]
  - Nausea [Recovered/Resolved]
  - Renal disorder [Recovered/Resolved]

NARRATIVE: CASE EVENT DATE: 20230903
